FAERS Safety Report 23195912 (Version 1)
Quarter: 2023Q4

REPORT INFORMATION
  Report Type: Spontaneous
  Country: IT (occurrence: IT)
  Receive Date: 20231117
  Receipt Date: 20231117
  Transmission Date: 20240110
  Serious: Yes (Hospitalization)
  Sender: FDA-Public Use
  Company Number: None

PATIENT
  Age: 18 Year
  Sex: Female

DRUGS (2)
  1. DULOXETINE [Suspect]
     Active Substance: DULOXETINE
     Indication: Product used for unknown indication
     Dosage: DURATION:5 DAYS
     Dates: start: 20231004, end: 20231009
  2. CINNARIZINA [Concomitant]
     Indication: Product used for unknown indication
     Dosage: DURATION:5 DAYS
     Dates: start: 20231004, end: 20231009

REACTIONS (1)
  - Mydriasis [Recovering/Resolving]

NARRATIVE: CASE EVENT DATE: 20231006
